FAERS Safety Report 8644021 (Version 3)
Quarter: 2012Q4

REPORT INFORMATION
  Report Type: 
  Country: US (occurrence: US)
  Receive Date: 20120629
  Receipt Date: 20121009
  Transmission Date: 20130627
  Serious: Yes (Death, Hospitalization)
  Sender: FDA-Public Use
  Company Number: US-GLAXOSMITHKLINE-A0982622A

PATIENT
  Age: 61 Year
  Sex: Female

DRUGS (1)
  1. FLOLAN [Suspect]
     Indication: PRODUCT USED FOR UNKNOWN INDICATION
     Dosage: 22NG Continuous
     Route: 065
     Dates: start: 20120322

REACTIONS (3)
  - Cardiac failure congestive [Unknown]
  - Dyspnoea [Unknown]
  - Death [Fatal]
